FAERS Safety Report 19070003 (Version 2)
Quarter: 2021Q2

REPORT INFORMATION
  Report Type: Spontaneous
  Country: US (occurrence: US)
  Receive Date: 20210329
  Receipt Date: 20210419
  Transmission Date: 20210717
  Serious: No
  Sender: FDA-Public Use
  Company Number: US-PFIZER INC-2021324140

PATIENT
  Age: 75 Year
  Sex: Male
  Weight: 68.03 kg

DRUGS (1)
  1. VIAGRA [Suspect]
     Active Substance: SILDENAFIL CITRATE
     Indication: PROSTATECTOMY
     Dosage: 100 MG, EVERY 3 WEEKS
     Dates: start: 2016

REACTIONS (2)
  - Hypoacusis [Unknown]
  - Therapeutic product effect incomplete [Unknown]
